FAERS Safety Report 21802747 (Version 1)
Quarter: 2022Q4

REPORT INFORMATION
  Report Type: Spontaneous
  Country: CO (occurrence: CO)
  Receive Date: 20221231
  Receipt Date: 20221231
  Transmission Date: 20230113
  Serious: Yes (Hospitalization, Other)
  Sender: FDA-Public Use
  Company Number: CO-Accord-290985

PATIENT
  Age: 32 Year
  Sex: Female

DRUGS (5)
  1. MYCOPHENOLATE SODIUM [Suspect]
     Active Substance: MYCOPHENOLATE SODIUM
     Indication: Immunosuppression
  2. TACROLIMUS [Suspect]
     Active Substance: TACROLIMUS
     Indication: Immunosuppression
  3. DEFLAZACORT [Suspect]
     Active Substance: DEFLAZACORT
     Indication: Immunosuppression
  4. LOPERAMIDE [Concomitant]
     Active Substance: LOPERAMIDE
     Indication: Diarrhoea
  5. IRON [Concomitant]
     Active Substance: IRON
     Indication: Normochromic normocytic anaemia
     Route: 048

REACTIONS (4)
  - Cytomegalovirus colitis [Recovered/Resolved]
  - Intestinal tuberculosis [Recovered/Resolved]
  - Iron deficiency anaemia [Recovering/Resolving]
  - Large intestinal stenosis [Unknown]
